FAERS Safety Report 5611473-0 (Version None)
Quarter: 2008Q1

REPORT INFORMATION
  Report Type: 
  Country: None (occurrence: None)
  Receive Date: 20080201
  Receipt Date: 20070907
  Transmission Date: 20080703
  Serious: No
  Sender: FDA-Public Use
  Company Number: A0664031A

PATIENT
  Age: 61 Year
  Sex: Female

DRUGS (14)
  1. LOTRONEX [Suspect]
     Indication: IRRITABLE BOWEL SYNDROME
     Dosage: 2MG PER DAY
     Route: 048
     Dates: start: 19990101
  2. KADIAN [Concomitant]
  3. OXYCODONE [Concomitant]
  4. VALIUM [Concomitant]
  5. SOMA [Concomitant]
  6. ZETIA [Concomitant]
  7. VALTREX [Concomitant]
  8. SINGULAIR [Concomitant]
  9. ROZEREM [Concomitant]
  10. LEXAPRO [Concomitant]
  11. LASIX [Concomitant]
  12. POTASSIUM CHLORIDE [Concomitant]
  13. LOPERAMIDE HYDROCHLORIDE [Concomitant]
  14. DIAZEPAM [Concomitant]

REACTIONS (1)
  - DRUG INEFFECTIVE [None]
